FAERS Safety Report 5762835-2 (Version None)
Quarter: 2008Q2

REPORT INFORMATION
  Report Type: 
  Country: None (occurrence: None)
  Receive Date: 20080609
  Receipt Date: 20080606
  Transmission Date: 20081010
  Serious: Yes (Hospitalization, Other)
  Sender: FDA-Public Use
  Company Number: IE-BRISTOL-MYERS SQUIBB COMPANY-14215602

PATIENT
  Age: 6 Decade
  Sex: Female

DRUGS (1)
  1. MODECATE [Suspect]
     Dosage: INCREASED TO 25 OVER A PERIOD OF TWO WEEKS.

REACTIONS (1)
  - MYOCARDIAL INFARCTION [None]
